FAERS Safety Report 9603797 (Version 1)
Quarter: 2013Q4

REPORT INFORMATION
  Report Type: Spontaneous
  Country: US (occurrence: US)
  Receive Date: 20131008
  Receipt Date: 20131008
  Transmission Date: 20140711
  Serious: No
  Sender: FDA-Public Use
  Company Number: US-B.I. PHARMACEUTICALS,INC./RIDGEFIELD-2013-BI-30570BP

PATIENT
  Age: 67 Year
  Sex: Female
  Weight: 95 kg

DRUGS (4)
  1. PRADAXA [Suspect]
     Indication: ATRIAL FIBRILLATION
     Route: 048
     Dates: start: 2010
  2. CARVEDILOL [Concomitant]
     Indication: ATRIAL FIBRILLATION
     Route: 048
  3. UNKNOWN MEDICATION [Concomitant]
     Indication: HYPOTHYROIDISM
     Route: 048
  4. UNKNOWN MEDICATION [Concomitant]
     Route: 048

REACTIONS (1)
  - Laceration [Recovered/Resolved]
